FAERS Safety Report 15012666 (Version 1)
Quarter: 2018Q2

REPORT INFORMATION
  Report Type: Spontaneous
  Country: JP (occurrence: JP)
  Receive Date: 20180614
  Receipt Date: 20180614
  Transmission Date: 20180711
  Serious: Yes (Other)
  Sender: FDA-Public Use
  Company Number: JP-TEVA-2018-JP-879023

PATIENT
  Age: 7 Decade
  Sex: Male

DRUGS (15)
  1. BENDAMUSTINE HYDROCHLORIDE. [Suspect]
     Active Substance: BENDAMUSTINE HYDROCHLORIDE
     Dosage: (FOURTH CYCLE)
     Route: 042
     Dates: start: 20170227, end: 20170228
  2. LANSOPRAZOLE. [Concomitant]
     Active Substance: LANSOPRAZOLE
     Indication: PROPHYLAXIS
     Dosage: 15 MG, ONCE DAILY (AT MORNING)
     Route: 048
     Dates: start: 20161107, end: 20170517
  3. BENDAMUSTINE HYDROCHLORIDE. [Suspect]
     Active Substance: BENDAMUSTINE HYDROCHLORIDE
     Indication: B-CELL LYMPHOMA
     Dosage: (FIRST CYCLE)
     Route: 042
     Dates: start: 20161108, end: 20161109
  4. BENDAMUSTINE HYDROCHLORIDE. [Suspect]
     Active Substance: BENDAMUSTINE HYDROCHLORIDE
     Dosage: (SIXTH CYCLE)
     Route: 042
     Dates: start: 20170510, end: 20170511
  5. RITUXIMAB. [Suspect]
     Active Substance: RITUXIMAB
     Dosage: (THIRD CYCLE)
     Route: 041
     Dates: start: 20170116
  6. AMLODIPINE [Concomitant]
     Active Substance: AMLODIPINE BESYLATE
     Indication: HYPERTENSION
     Dosage: 5 MG, ONCE DAILY (AT MORNING)
     Route: 048
     Dates: start: 20161207
  7. RITUXIMAB. [Suspect]
     Active Substance: RITUXIMAB
     Dosage: (SECOND CYCLE)
     Route: 041
     Dates: start: 20161205
  8. RITUXIMAB. [Suspect]
     Active Substance: RITUXIMAB
     Dosage: (FIFTH CYCLE)
     Route: 041
     Dates: start: 20170328
  9. FEBUXOSTAT. [Concomitant]
     Active Substance: FEBUXOSTAT
     Indication: PROPHYLAXIS
     Dosage: 20 MG, ONCE DAILY (MORNING)
     Route: 048
     Dates: start: 20161107, end: 20170517
  10. BENDAMUSTINE HYDROCHLORIDE. [Suspect]
     Active Substance: BENDAMUSTINE HYDROCHLORIDE
     Dosage: (THIRD CYCLE)
     Route: 042
     Dates: start: 20170117, end: 20170118
  11. RITUXIMAB. [Suspect]
     Active Substance: RITUXIMAB
     Indication: B-CELL LYMPHOMA
     Dosage: (FIRST CYCLE)
     Route: 041
     Dates: start: 20161107
  12. RITUXIMAB. [Suspect]
     Active Substance: RITUXIMAB
     Dosage: (SIXTH CYCLE)
     Route: 041
     Dates: start: 20170509
  13. BENDAMUSTINE HYDROCHLORIDE. [Suspect]
     Active Substance: BENDAMUSTINE HYDROCHLORIDE
     Dosage: (FIFTH CYCLE)
     Route: 042
     Dates: start: 20170329, end: 20170330
  14. RITUXIMAB. [Suspect]
     Active Substance: RITUXIMAB
     Dosage: (FOURTH CYCLE)
     Route: 041
     Dates: start: 20170213
  15. BENDAMUSTINE HYDROCHLORIDE. [Suspect]
     Active Substance: BENDAMUSTINE HYDROCHLORIDE
     Dosage: (SECOND CYCLE)
     Route: 042
     Dates: start: 20161206, end: 20161207

REACTIONS (4)
  - White blood cell count abnormal [Unknown]
  - Prescribed underdose [Unknown]
  - Bronchitis [Unknown]
  - Neutropenia [Not Recovered/Not Resolved]

NARRATIVE: CASE EVENT DATE: 2017
